FAERS Safety Report 5072214-1 (Version None)
Quarter: 2006Q3

REPORT INFORMATION
  Report Type: 
  Country: None (occurrence: None)
  Receive Date: 20060710
  Receipt Date: 20060310
  Transmission Date: 20061208
  Serious: Yes (Other)
  Sender: FDA-Public Use
  Company Number: 2006US000360

PATIENT
  Age: 77 Year
  Sex: Female
  Weight: 53.5 kg

DRUGS (12)
  1. ADENOSCAN [Suspect]
     Indication: SCAN MYOCARDIAL PERFUSION
     Dosage: 44.5 MG/ML, TOTAL DOSE, IV NOS
     Route: 042
     Dates: start: 20051115, end: 20051115
  2. MYOVIEW (ZINC CHLORIDE, TETROFOSMIN) [Concomitant]
  3. LIBRAX /SCH/ (CHLORDIAZEPOXIDE, CLIDINIUM BROMIDE) [Concomitant]
  4. PLAVIX [Concomitant]
  5. METFORMIN [Concomitant]
  6. NEXIUM [Concomitant]
  7. ZOLOFT [Concomitant]
  8. ALTACE [Concomitant]
  9. MICARDIS [Concomitant]
  10. ACTOS /CAN/ (PIOGLITAZONE HYDROCHLORIDE) [Concomitant]
  11. VYTORIN [Concomitant]
  12. DOMPERIDONE [Concomitant]

REACTIONS (1)
  - BLOOD PRESSURE INCREASED [None]
